FAERS Safety Report 25230557 (Version 1)
Quarter: 2025Q2

REPORT INFORMATION
  Report Type: Other
  Country: CN (occurrence: CN)
  Receive Date: 20250423
  Receipt Date: 20250423
  Transmission Date: 20250716
  Serious: Yes (Hospitalization, Other)
  Sender: Hibrow Healthcare
  Company Number: CN-Hibrow Healthcare Private Ltd-2175453

PATIENT
  Age: 60 Year
  Sex: Female

DRUGS (4)
  1. BACLOFEN [Suspect]
     Active Substance: BACLOFEN
     Indication: Muscle spasms
     Dates: start: 20231108
  2. CITALOPRAM [Concomitant]
     Active Substance: CITALOPRAM
  3. CLONAZEPAM [Concomitant]
     Active Substance: CLONAZEPAM
  4. OXCARBAZEPINE [Concomitant]
     Active Substance: OXCARBAZEPINE

REACTIONS (1)
  - Central sleep apnoea syndrome [Recovering/Resolving]
